FAERS Safety Report 4889922-5 (Version None)
Quarter: 2006Q1

REPORT INFORMATION
  Report Type: 
  Country: None (occurrence: None)
  Receive Date: 20060120
  Receipt Date: 20060105
  Transmission Date: 20060701
  Serious: Yes (Other)
  Sender: FDA-Public Use
  Company Number: DE-2005-024083

PATIENT
  Age: 39 Year
  Sex: Female
  Weight: 84 kg

DRUGS (1)
  1. BETASERON [Suspect]
     Indication: MULTIPLE SCLEROSIS
     Dosage: SUBCUTANEOUS
     Route: 058
     Dates: start: 20010101

REACTIONS (5)
  - COLITIS [None]
  - GASTRITIS EROSIVE [None]
  - GIARDIASIS [None]
  - HELICOBACTER GASTRITIS [None]
  - PARASITE STOOL TEST POSITIVE [None]
